FAERS Safety Report 10413018 (Version 1)
Quarter: 2014Q3

REPORT INFORMATION
  Report Type: Spontaneous
  Country: US (occurrence: None)
  Receive Date: 20140826
  Receipt Date: 20140826
  Transmission Date: 20150326
  Serious: Yes (Disabling)
  Sender: FDA-Public Use
  Company Number: None

PATIENT
  Age: 75 Year
  Sex: Female
  Weight: 64.41 kg

DRUGS (1)
  1. LESCOL [Suspect]
     Active Substance: FLUVASTATIN SODIUM
     Indication: LOW DENSITY LIPOPROTEIN INCREASED
     Dosage: ONE ONCE DAILY
     Dates: start: 20140724, end: 20140820

REACTIONS (1)
  - Hepatitis [None]

NARRATIVE: CASE EVENT DATE: 20140820
